FAERS Safety Report 6878637-X (Version None)
Quarter: 2010Q3

REPORT INFORMATION
  Report Type: 
  Country: None (occurrence: None)
  Receive Date: 20100728
  Receipt Date: 20100721
  Transmission Date: 20110219
  Serious: Yes (Life-Threatening, Hospitalization, Other)
  Sender: FDA-Public Use
  Company Number: A0870698A

PATIENT
  Sex: Male
  Weight: 92 kg

DRUGS (4)
  1. ELTROMBOPAG [Suspect]
     Indication: THROMBOCYTOPENIA
     Route: 048
     Dates: start: 20100303, end: 20100707
  2. PEG-INTRON [Suspect]
     Dosage: 150MCG WEEKLY
     Route: 058
     Dates: start: 20100303, end: 20100707
  3. REBETOL [Suspect]
     Route: 048
     Dates: start: 20100303, end: 20100707
  4. ELTROMBOPAG [Suspect]
     Dosage: 25MG PER DAY
     Route: 048
     Dates: start: 20100202, end: 20100217

REACTIONS (6)
  - ASCITES [None]
  - COMA [None]
  - COMA HEPATIC [None]
  - JAUNDICE CHOLESTATIC [None]
  - PRURITUS [None]
  - VOMITING [None]
